FAERS Safety Report 21651637 (Version 2)
Quarter: 2023Q1

REPORT INFORMATION
  Report Type: Spontaneous
  Country: JP (occurrence: JP)
  Receive Date: 20221128
  Receipt Date: 20230123
  Transmission Date: 20230417
  Serious: Yes (Death, Other)
  Sender: FDA-Public Use
  Company Number: JP-TAKEDA-2022TJP077797

PATIENT
  Age: 49 Year
  Sex: Male
  Weight: 66.2 kg

DRUGS (6)
  1. ADCETRIS [Suspect]
     Active Substance: BRENTUXIMAB VEDOTIN
     Indication: Hodgkin^s disease stage III
     Dosage: 1.2 MILLIGRAM/KILOGRAM
     Route: 065
     Dates: start: 20201007, end: 20201007
  2. DOXORUBICIN HYDROCHLORIDE [Suspect]
     Active Substance: DOXORUBICIN HYDROCHLORIDE
     Indication: Hodgkin^s disease stage III
     Dosage: 25 MILLIGRAM/SQ. METER
     Route: 065
     Dates: start: 20201007, end: 20201007
  3. VINBLASTINE SULFATE [Suspect]
     Active Substance: VINBLASTINE SULFATE
     Indication: Hodgkin^s disease stage III
     Dosage: 6 MILLIGRAM/SQ. METER
     Route: 065
     Dates: start: 20201007, end: 20201007
  4. DACARBAZINE [Suspect]
     Active Substance: DACARBAZINE
     Indication: Hodgkin^s disease stage III
     Dosage: 375 MILLIGRAM/SQ. METER
     Route: 065
     Dates: start: 20201007, end: 20201007
  5. SULFAMETHOXAZOLE\TRIMETHOPRIM [Concomitant]
     Active Substance: SULFAMETHOXAZOLE\TRIMETHOPRIM
     Dosage: 1 GRAM, QD
     Route: 048
     Dates: start: 20201007, end: 20201016
  6. FOSFLUCONAZOLE [Concomitant]
     Active Substance: FOSFLUCONAZOLE
     Dosage: 200 MILLIGRAM, QD
     Route: 041
     Dates: start: 20201106, end: 20201115

REACTIONS (3)
  - Septic shock [Fatal]
  - Ileus paralytic [Fatal]
  - Sepsis [Fatal]

NARRATIVE: CASE EVENT DATE: 20201015
